FAERS Safety Report 24288211 (Version 3)
Quarter: 2024Q3

REPORT INFORMATION
  Report Type: Spontaneous
  Country: US (occurrence: US)
  Receive Date: 20240905
  Receipt Date: 20240910
  Transmission Date: 20241017
  Serious: Yes (Hospitalization, Other)
  Sender: BOEHRINGER INGELHEIM
  Company Number: US-Komodo Health-a23aa000002zpneAAA

PATIENT
  Age: 76 Year
  Sex: Male

DRUGS (1)
  1. JARDIANCE [Suspect]
     Active Substance: EMPAGLIFLOZIN
     Indication: Renal disorder prophylaxis
     Dates: start: 20240520, end: 20240905

REACTIONS (4)
  - Urinary tract infection bacterial [Unknown]
  - Acute kidney injury [Unknown]
  - Sepsis [Unknown]
  - Epididymitis [Unknown]
